FAERS Safety Report 24609576 (Version 1)
Quarter: 2024Q4

REPORT INFORMATION
  Report Type: Spontaneous
  Country: US (occurrence: None)
  Receive Date: 20241112
  Receipt Date: 20241112
  Transmission Date: 20250115
  Serious: Yes (Hospitalization, Other)
  Sender: Public
  Company Number: None

PATIENT
  Age: 39 Year
  Sex: Female
  Weight: 99 kg

DRUGS (2)
  1. SEMAGLUTIDE [Suspect]
     Active Substance: SEMAGLUTIDE
     Indication: Weight decreased
     Dosage: OTHER QUANTITY : 1.0 MG;?OTHER FREQUENCY : 1 A WEEK;?
     Route: 058
     Dates: start: 20240601, end: 20240907
  2. TYLENOL [Concomitant]
     Active Substance: ACETAMINOPHEN

REACTIONS (9)
  - Dyspepsia [None]
  - Abdominal pain upper [None]
  - Therapy cessation [None]
  - Burning sensation [None]
  - Vomiting [None]
  - Back pain [None]
  - Pancreatitis [None]
  - Biliary obstruction [None]
  - Cholecystitis [None]

NARRATIVE: CASE EVENT DATE: 20241102
